FAERS Safety Report 4805423-4 (Version None)
Quarter: 2005Q4

REPORT INFORMATION
  Report Type: 
  Country: None (occurrence: None)
  Receive Date: 20051018
  Receipt Date: 20051005
  Transmission Date: 20060501
  Serious: Yes (Other)
  Sender: FDA-Public Use
  Company Number: 2005138977

PATIENT
  Age: 7 Year
  Sex: Female

DRUGS (3)
  1. SULFASALAZINE [Suspect]
     Indication: COLITIS ULCERATIVE
     Dosage: ORAL
     Route: 048
  2. STEROID ANTIBACTERIALS (STEROID ANTIBACTERIALS) [Concomitant]
  3. MESALAMINE [Concomitant]

REACTIONS (4)
  - DIARRHOEA [None]
  - NASOPHARYNGITIS [None]
  - RENAL FAILURE ACUTE [None]
  - VOMITING [None]
